FAERS Safety Report 5357942-2 (Version None)
Quarter: 2007Q2

REPORT INFORMATION
  Report Type: 
  Country: None (occurrence: None)
  Receive Date: 20070530
  Receipt Date: 20070306
  Transmission Date: 20071010
  Serious: Yes (Other)
  Sender: FDA-Public Use
  Company Number: US200701000649

PATIENT
  Age: 32 Year
  Sex: Male
  Weight: 133.8 kg

DRUGS (5)
  1. ZYPREXA [Suspect]
     Indication: SCHIZOPHRENIA, PARANOID TYPE
     Dosage: 5 MG : 15 MG
     Dates: start: 19970101, end: 20010101
  2. RISPERIDONE [Concomitant]
  3. HALOPERIDOL [Concomitant]
  4. STELAZINE [Concomitant]
  5. ABILIFY [Concomitant]

REACTIONS (16)
  - ANGER [None]
  - BLOOD CHOLESTEROL INCREASED [None]
  - BLOOD TRIGLYCERIDES INCREASED [None]
  - CYST [None]
  - DIABETES MELLITUS [None]
  - HEPATIC ENZYME INCREASED [None]
  - HYPERGLYCAEMIA [None]
  - LOSS OF CONSCIOUSNESS [None]
  - MENTAL DISORDER [None]
  - METABOLIC DISORDER [None]
  - OBESITY [None]
  - SEXUAL DYSFUNCTION [None]
  - SKIN DISORDER [None]
  - TINEA PEDIS [None]
  - VISUAL DISTURBANCE [None]
  - WEIGHT INCREASED [None]
